FAERS Safety Report 7072550-3 (Version None)
Quarter: 2010Q4

REPORT INFORMATION
  Report Type: 
  Country: None (occurrence: None)
  Receive Date: 20101029
  Receipt Date: 20100209
  Transmission Date: 20110411
  Serious: No
  Sender: FDA-Public Use
  Company Number: A0843766A

PATIENT
  Sex: Male

DRUGS (3)
  1. ADVAIR DISKUS 100/50 [Suspect]
     Route: 055
  2. ROPINIROLE [Suspect]
     Indication: RESTLESS LEGS SYNDROME
     Route: 048
  3. ALBUTEROL [Concomitant]

REACTIONS (2)
  - CANDIDIASIS [None]
  - GAMBLING [None]
